FAERS Safety Report 11123618 (Version 3)
Quarter: 2015Q2

REPORT INFORMATION
  Report Type: Spontaneous
  Country: US (occurrence: US)
  Receive Date: 20150519
  Receipt Date: 20150626
  Transmission Date: 20150821
  Serious: Yes (Life-Threatening, Other)
  Sender: FDA-Public Use
  Company Number: US-009507513-1505USA006569

PATIENT
  Age: 46 Year
  Sex: Female
  Weight: 97.96 kg

DRUGS (1)
  1. RAGWITEK [Suspect]
     Active Substance: AMBROSIA ARTEMISIIFOLIA POLLEN
     Dosage: 1 TABLET ONCE DAILY, STRENGHT: 12AMB A 1-U
     Route: 060
     Dates: start: 20150428, end: 20150428

REACTIONS (1)
  - Anaphylactic shock [Recovered/Resolved]

NARRATIVE: CASE EVENT DATE: 20150428
